FAERS Safety Report 9793234 (Version 1)
Quarter: 2013Q4

REPORT INFORMATION
  Report Type: Spontaneous
  Country: PT (occurrence: None)
  Receive Date: 20131230
  Receipt Date: 20131230
  Transmission Date: 20140711
  Serious: Yes (Hospitalization)
  Sender: FDA-Public Use
  Company Number: IPC201312-000529

PATIENT
  Age: 85 Year
  Sex: Female

DRUGS (3)
  1. ALLOPURINOL [Suspect]
  2. NITROFURANTOIN [Suspect]
  3. FENOFIBRATE (FENOFIBRATE) (FENOFIBRATE) [Suspect]

REACTIONS (5)
  - Drug reaction with eosinophilia and systemic symptoms [None]
  - Renal failure acute [None]
  - Face oedema [None]
  - Bronchial hyperreactivity [None]
  - Dyspnoea [None]
